FAERS Safety Report 9666837 (Version 1)
Quarter: 2013Q4

REPORT INFORMATION
  Report Type: Spontaneous
  Country: US (occurrence: US)
  Receive Date: 20131104
  Receipt Date: 20131104
  Transmission Date: 20140711
  Serious: No
  Sender: FDA-Public Use
  Company Number: US-BIOGENIDEC-2013BI087916

PATIENT
  Sex: Male
  Weight: 106 kg

DRUGS (15)
  1. TECFIDERA [Suspect]
     Indication: MULTIPLE SCLEROSIS
     Dates: start: 2013, end: 201307
  2. NUVIGIL [Concomitant]
     Route: 048
  3. VITAMIN D-3 ORAL (CALCIUM CARBONATE/ VITAMIN D3) [Concomitant]
     Route: 048
  4. VITAMIN B12 [Concomitant]
     Route: 048
  5. AMPYRA [Concomitant]
     Route: 048
  6. ARICEPT [Concomitant]
     Route: 048
  7. COLACE [Concomitant]
     Route: 048
  8. ERGOCALCIFEROL [Concomitant]
     Route: 048
  9. NEURONTIN [Concomitant]
     Route: 048
  10. MELATONIN [Concomitant]
     Route: 048
  11. PRILOSEC [Concomitant]
     Route: 048
  12. ROXICET [Concomitant]
     Route: 048
  13. LYRICA [Concomitant]
     Route: 048
  14. DETROL [Concomitant]
     Route: 048
  15. AMBIEN [Concomitant]
     Route: 048

REACTIONS (3)
  - Mental impairment [Recovered/Resolved]
  - Hypersensitivity [Unknown]
  - Multiple sclerosis relapse [Unknown]
